FAERS Safety Report 14848104 (Version 1)
Quarter: 2018Q2

REPORT INFORMATION
  Report Type: Spontaneous
  Country: ES (occurrence: ES)
  Receive Date: 20180504
  Receipt Date: 20180504
  Transmission Date: 20180711
  Serious: Yes (Other)
  Sender: FDA-Public Use
  Company Number: ES-MYLANLABS-2018M1028591

PATIENT
  Age: 92 Year
  Sex: Female
  Weight: 104 kg

DRUGS (1)
  1. MOXIFLOXACIN. [Suspect]
     Active Substance: MOXIFLOXACIN
     Indication: OSTEOMYELITIS
     Dosage: 40 MG, QD
     Route: 048
     Dates: start: 201711, end: 201711

REACTIONS (4)
  - Insomnia [Recovered/Resolved]
  - Cognitive disorder [Recovered/Resolved]
  - Restlessness [Recovered/Resolved]
  - Abnormal behaviour [Recovered/Resolved]

NARRATIVE: CASE EVENT DATE: 201711
